FAERS Safety Report 24283615 (Version 1)
Quarter: 2024Q3

REPORT INFORMATION
  Report Type: Spontaneous
  Country: US (occurrence: US)
  Receive Date: 20240904
  Receipt Date: 20240904
  Transmission Date: 20241016
  Serious: No
  Sender: BLUEPRINT MEDICINES
  Company Number: US-Blueprint Medicines Corporation-LT-US-2024-001767

PATIENT
  Age: 55 Year
  Sex: Male

DRUGS (2)
  1. AYVAKIT [Suspect]
     Active Substance: AVAPRITINIB
     Indication: Desmoid tumour
     Route: 048
  2. AYVAKIT [Suspect]
     Active Substance: AVAPRITINIB
     Dosage: DAILY EVERY OTHER WEEK
     Route: 048

REACTIONS (4)
  - Cognitive disorder [Recovered/Resolved]
  - Generalised oedema [Recovered/Resolved]
  - Fatigue [Recovered/Resolved]
  - Off label use [Unknown]
